FAERS Safety Report 5586082-2 (Version None)
Quarter: 2007Q4

REPORT INFORMATION
  Report Type: 
  Country: None (occurrence: None)
  Receive Date: 20071205
  Receipt Date: 20070724
  Transmission Date: 20080405
  Serious: Yes (Other)
  Sender: FDA-Public Use
  Company Number: HQWYE217325JUL07

PATIENT
  Sex: Female

DRUGS (1)
  1. EFFEXOR XR [Suspect]
     Dosage: OVERDOSE AMOUNT WAS ^A WHOLE BOTTLE OF EFFEXOR XR^, ORAL
     Route: 048
     Dates: start: 20070601, end: 20070601

REACTIONS (2)
  - CONVULSION [None]
  - INTENTIONAL OVERDOSE [None]
